FAERS Safety Report 16565221 (Version 1)
Quarter: 2019Q3

REPORT INFORMATION
  Report Type: Spontaneous
  Country: US (occurrence: US)
  Receive Date: 20190711
  Receipt Date: 20190711
  Transmission Date: 20191004
  Serious: Yes (Hospitalization, Disabling)
  Sender: FDA-Public Use
  Company Number: None

PATIENT
  Age: 31 Year
  Sex: Female
  Weight: 81 kg

DRUGS (1)
  1. CIPROFOXACIN [Suspect]
     Active Substance: CIPROFLOXACIN
     Indication: URINARY TRACT INFECTION
     Dosage: ?          QUANTITY:5 TABLET(S);?
     Route: 048
     Dates: start: 20181003, end: 20181006

REACTIONS (13)
  - Diarrhoea [None]
  - Confusional state [None]
  - Faeces soft [None]
  - Headache [None]
  - Asthenia [None]
  - Nausea [None]
  - Lactose intolerance [None]
  - Glomerular filtration rate decreased [None]
  - Dyspepsia [None]
  - Gastric disorder [None]
  - Abdominal pain upper [None]
  - Dizziness [None]
  - Feeling jittery [None]

NARRATIVE: CASE EVENT DATE: 20181003
